FAERS Safety Report 9355899 (Version 1)
Quarter: 2013Q2

REPORT INFORMATION
  Report Type: Spontaneous
  Country: US (occurrence: US)
  Receive Date: 20130619
  Receipt Date: 20130619
  Transmission Date: 20140414
  Serious: No
  Sender: FDA-Public Use
  Company Number: US-PFIZER INC-2013181013

PATIENT
  Age: 79 Year
  Sex: Female
  Weight: 67.12 kg

DRUGS (4)
  1. LIPITOR [Suspect]
     Indication: BLOOD CHOLESTEROL INCREASED
     Dosage: UNK
  2. CALTRATE 600 +D PLUS [Concomitant]
     Indication: RESTLESS LEGS SYNDROME
     Dosage: UNK, 2X/DAY
     Route: 048
  3. CALTRATE 600 +D PLUS [Concomitant]
     Indication: MUSCLE SPASMS
  4. MAGNESIUM [Concomitant]
     Dosage: UNK

REACTIONS (1)
  - Pain in extremity [Unknown]
